FAERS Safety Report 14202544 (Version 2)
Quarter: 2018Q3

REPORT INFORMATION
  Report Type: Spontaneous
  Country: US (occurrence: US)
  Receive Date: 20171117
  Receipt Date: 20180717
  Transmission Date: 20181010
  Serious: No
  Sender: FDA-Public Use
  Company Number: US-BAUSCH-BL-2017-023055

PATIENT
  Age: 65 Year
  Sex: Male
  Weight: 96.7 kg

DRUGS (1)
  1. XIFAXAN [Suspect]
     Active Substance: RIFAXIMIN
     Indication: HEPATIC ENCEPHALOPATHY
     Route: 048
     Dates: start: 20130313

REACTIONS (2)
  - Road traffic accident [Unknown]
  - Ligament sprain [Unknown]

NARRATIVE: CASE EVENT DATE: 201707
